FAERS Safety Report 25495653 (Version 2)
Quarter: 2025Q4

REPORT INFORMATION
  Report Type: Spontaneous
  Country: US (occurrence: US)
  Receive Date: 20250630
  Receipt Date: 20251014
  Transmission Date: 20260117
  Serious: No
  Sender: SANOFI AVENTIS
  Company Number: US-SA-2025SA183373

PATIENT
  Age: 68 Year
  Sex: Female

DRUGS (3)
  1. DUPIXENT [Suspect]
     Active Substance: DUPILUMAB
     Indication: Dermatitis contact
     Dosage: 300 MG, QOW
     Route: 058
     Dates: start: 202505
  2. HYDROCHLOROTHIAZIDE\TRIAMTERENE [Suspect]
     Active Substance: HYDROCHLOROTHIAZIDE\TRIAMTERENE
  3. HUMIRA [Concomitant]
     Active Substance: ADALIMUMAB

REACTIONS (7)
  - Gait disturbance [Unknown]
  - Pain [Unknown]
  - Loss of personal independence in daily activities [Unknown]
  - Drug hypersensitivity [Unknown]
  - Fluid retention [Unknown]
  - Urine output decreased [Unknown]
  - Product use in unapproved indication [Unknown]

NARRATIVE: CASE EVENT DATE: 20250101
